FAERS Safety Report 24359078 (Version 1)
Quarter: 2024Q3

REPORT INFORMATION
  Report Type: Report from Study
  Country: AR (occurrence: AR)
  Receive Date: 20240924
  Receipt Date: 20240924
  Transmission Date: 20241017
  Serious: Yes (Other)
  Sender: Unknown Manufacturer
  Company Number: AR-ROCHE-3557457

PATIENT

DRUGS (1)
  1. PRALSETINIB [Suspect]
     Active Substance: PRALSETINIB
     Indication: Non-small cell lung cancer
     Route: 048

REACTIONS (3)
  - Pneumonitis [Recovered/Resolved]
  - Pyrexia [Unknown]
  - Disease progression [Unknown]

NARRATIVE: CASE EVENT DATE: 20240422
